FAERS Safety Report 5124956-7 (Version None)
Quarter: 2006Q4

REPORT INFORMATION
  Report Type: 
  Country: None (occurrence: None)
  Receive Date: 20061011
  Receipt Date: 20061004
  Transmission Date: 20070319
  Serious: Yes (Death, Other)
  Sender: FDA-Public Use
  Company Number: AU-JNJFOC-20060905806

PATIENT
  Sex: Female
  Weight: 38.68 kg

DRUGS (4)
  1. DURAGESIC-100 [Suspect]
     Indication: DISCOMFORT
     Route: 062
  2. DURAGESIC-100 [Suspect]
     Indication: PAIN
     Route: 062
  3. SINEMET [Concomitant]
     Indication: PARKINSON'S DISEASE
     Route: 048
  4. VALIUM [Concomitant]
     Indication: DRUG USE FOR UNKNOWN INDICATION
     Route: 048

REACTIONS (2)
  - GRAND MAL CONVULSION [None]
  - PARKINSON'S DISEASE [None]
